FAERS Safety Report 9438209 (Version 2)
Quarter: 2014Q3

REPORT INFORMATION
  Report Type: Spontaneous
  Country: US (occurrence: US)
  Receive Date: 20130802
  Receipt Date: 20140910
  Transmission Date: 20150326
  Serious: Yes (Death, Other)
  Sender: FDA-Public Use
  Company Number: US-BAYER-2013-093430

PATIENT
  Age: 29 Year
  Sex: Female
  Weight: 52.15 kg

DRUGS (1)
  1. MIRENA [Suspect]
     Active Substance: LEVONORGESTREL
     Indication: CONTRACEPTION
     Dosage: 20 MCG/24HR, CONT
     Route: 015
     Dates: end: 200305

REACTIONS (6)
  - Cervix carcinoma [Fatal]
  - Pain [Fatal]
  - Menorrhagia [None]
  - Abortion spontaneous [None]
  - Injury [Fatal]
  - Dyspareunia [None]
